FAERS Safety Report 14573149 (Version 1)
Quarter: 2018Q1

REPORT INFORMATION
  Report Type: Spontaneous
  Country: US (occurrence: US)
  Receive Date: 20180223
  Receipt Date: 20180223
  Transmission Date: 20180509
  Serious: Yes (Other)
  Sender: FDA-Public Use
  Company Number: None

PATIENT
  Age: 63 Year
  Sex: Female
  Weight: 81 kg

DRUGS (2)
  1. PRAMIPEXOLE TAB 1MG [Suspect]
     Active Substance: PRAMIPEXOLE DIHYDROCHLORIDE
     Indication: PARKINSON^S DISEASE
     Route: 048
     Dates: start: 20171024, end: 20180223
  2. PRAMIPEXOLE  TAB 1MG [Concomitant]

REACTIONS (6)
  - Heart rate increased [None]
  - Cardiac disorder [None]
  - Fall [None]
  - Nerve injury [None]
  - Loss of consciousness [None]
  - Blood pressure increased [None]

NARRATIVE: CASE EVENT DATE: 20180223
